FAERS Safety Report 22341329 (Version 1)
Quarter: 2023Q2

REPORT INFORMATION
  Report Type: Spontaneous
  Country: US (occurrence: US)
  Receive Date: 20230518
  Receipt Date: 20230518
  Transmission Date: 20230721
  Serious: No
  Sender: FDA-Public Use
  Company Number: US-LUNDBECK-DKLU3061122

PATIENT
  Age: 70 Year
  Sex: Female

DRUGS (1)
  1. VYEPTI [Suspect]
     Active Substance: EPTINEZUMAB-JJMR
     Indication: Migraine prophylaxis
     Dosage: 100MG/ML
     Route: 041
     Dates: start: 202211

REACTIONS (2)
  - Confusional state [Unknown]
  - Therapeutic response unexpected [Unknown]
